FAERS Safety Report 7012281-9 (Version None)
Quarter: 2010Q3

REPORT INFORMATION
  Report Type: 
  Country: None (occurrence: None)
  Receive Date: 20100910
  Receipt Date: 20100504
  Transmission Date: 20110219
  Serious: Yes (Other)
  Sender: FDA-Public Use
  Company Number: 1000013577

PATIENT
  Sex: Female

DRUGS (1)
  1. CELEXA [Suspect]

REACTIONS (2)
  - NONSPECIFIC REACTION [None]
  - SUICIDAL IDEATION [None]
